FAERS Safety Report 5081583-8 (Version None)
Quarter: 2006Q3

REPORT INFORMATION
  Report Type: 
  Country: None (occurrence: None)
  Receive Date: 20060811
  Receipt Date: 20060804
  Transmission Date: 20061208
  Serious: Yes (Other)
  Sender: FDA-Public Use
  Company Number: S06-USA-03036-01

PATIENT
  Age: 34 Year
  Sex: Female

DRUGS (3)
  1. LEXAPRO [Suspect]
     Indication: DEPRESSION
     Dosage: 20 MG QD PO
     Route: 048
  2. WELLBUTRIN XL [Suspect]
     Indication: DEPRESSION
     Dosage: 300 MG QD
  3. PRENATAL VITAMINS [Concomitant]

REACTIONS (4)
  - DRUG EXPOSURE DURING PREGNANCY [None]
  - GESTATIONAL DIABETES [None]
  - HAEMORRHAGE [None]
  - PREGNANCY [None]
